FAERS Safety Report 8453019-8 (Version None)
Quarter: 2012Q2

REPORT INFORMATION
  Report Type: 
  Country: None (occurrence: None)
  Receive Date: 20120620
  Receipt Date: 20120516
  Transmission Date: 20120825
  Serious: No
  Sender: FDA-Public Use
  Company Number: US-VERTEX PHARMACEUTICALS INC.-AE-2012-006483

PATIENT
  Sex: Female
  Weight: 61.744 kg

DRUGS (4)
  1. INCIVEK [Suspect]
     Indication: HEPATITIS C
     Route: 048
     Dates: start: 20120216, end: 20120223
  2. INCIVEK [Suspect]
     Route: 048
     Dates: start: 20120315
  3. PEGASYS [Concomitant]
     Indication: HEPATITIS C
     Route: 058
     Dates: start: 20120216
  4. RIBAVIRIN [Concomitant]
     Indication: HEPATITIS C
     Route: 048
     Dates: start: 20120216

REACTIONS (6)
  - NAUSEA [None]
  - PYREXIA [None]
  - VOMITING [None]
  - DECREASED APPETITE [None]
  - FATIGUE [None]
  - DYSGEUSIA [None]
